FAERS Safety Report 12255198 (Version 1)
Quarter: 2016Q2

REPORT INFORMATION
  Report Type: Report from Study
  Country: US (occurrence: US)
  Receive Date: 20160412
  Receipt Date: 20160412
  Transmission Date: 20160815
  Serious: Yes (Other)
  Sender: FDA-Public Use
  Company Number: US-AMGEN-USASL2016015961

PATIENT
  Age: 56 Year
  Sex: Female

DRUGS (1)
  1. REPATHA [Suspect]
     Active Substance: EVOLOCUMAB
     Indication: HYPERCHOLESTEROLAEMIA
     Dosage: 140 MG, Q2WK
     Route: 065
     Dates: start: 201601

REACTIONS (9)
  - Insomnia [Unknown]
  - Injection site pruritus [Unknown]
  - Injection site urticaria [Unknown]
  - Pruritus [Unknown]
  - Injection site scar [Not Recovered/Not Resolved]
  - Injection site erythema [Unknown]
  - Swelling face [Unknown]
  - Flushing [Unknown]
  - Injection site rash [Unknown]

NARRATIVE: CASE EVENT DATE: 2016
